FAERS Safety Report 10909949 (Version 1)
Quarter: 2015Q1

REPORT INFORMATION
  Report Type: Spontaneous
  Country: US (occurrence: US)
  Receive Date: 20150312
  Receipt Date: 20150312
  Transmission Date: 20150721
  Serious: No
  Sender: FDA-Public Use
  Company Number: US-SA-2014SA136462

PATIENT
  Age: 25 Year
  Sex: Male

DRUGS (1)
  1. NASACORT ALLERGY 24HR [Suspect]
     Active Substance: TRIAMCINOLONE ACETONIDE
     Indication: SEASONAL ALLERGY
     Dosage: DOSAGE FORM: 1 SPRAY QD TO BID?PRODUCT START DATE: 10 DAYS AGO
     Route: 065
     Dates: start: 2014, end: 20140930

REACTIONS (1)
  - Drug ineffective [None]
